FAERS Safety Report 22307916 (Version 2)
Quarter: 2023Q2

REPORT INFORMATION
  Report Type: Spontaneous
  Country: CO (occurrence: CO)
  Receive Date: 20230511
  Receipt Date: 20230530
  Transmission Date: 20230722
  Serious: Yes (Hospitalization, Other)
  Sender: FDA-Public Use
  Company Number: CO-BAYER-2023A065235

PATIENT
  Age: 70 Year
  Sex: Male

DRUGS (1)
  1. ADEMPAS [Suspect]
     Active Substance: RIOCIGUAT
     Dosage: 2.5 MG, TID
     Dates: end: 20230429

REACTIONS (5)
  - Pulmonary arterial hypertension [None]
  - Chest pain [None]
  - Syncope [None]
  - Incorrect product administration duration [None]
  - Product prescribing issue [None]

NARRATIVE: CASE EVENT DATE: 20230501
